FAERS Safety Report 8612497 (Version 2)
Quarter: 2012Q4

REPORT INFORMATION
  Report Type: 
  Country: US (occurrence: US)
  Receive Date: 20120613
  Receipt Date: 20121211
  Transmission Date: 20130627
  Serious: Yes (Hospitalization)
  Sender: FDA-Public Use
  Company Number: US-BAYER-2012-057238

PATIENT
  Age: 16 Year
  Sex: Female
  Weight: 105.22 kg

DRUGS (10)
  1. OCELLA [Suspect]
     Dosage: UNK
     Dates: start: 200809, end: 200909
  2. YASMIN [Suspect]
  3. PAXIL [Concomitant]
     Indication: DEPRESSION
  4. PROZAC [Concomitant]
     Indication: DEPRESSION
  5. WELLBUTRIN [Concomitant]
     Indication: DEPRESSION
  6. EFFEXOR [Concomitant]
     Indication: DEPRESSION
  7. LEXAPRO [Concomitant]
     Indication: DEPRESSION
  8. ZOLPIDEM [Concomitant]
     Indication: SLEEP DISORDER THERAPY
  9. HYDROCODONE [Concomitant]
  10. AMOXICILLIN [Concomitant]

REACTIONS (4)
  - Cholecystitis [None]
  - Injury [None]
  - Pain [None]
  - Pain [None]
